FAERS Safety Report 9888432 (Version 2)
Quarter: 2014Q1

REPORT INFORMATION
  Report Type: Report from Study
  Country: DE (occurrence: DE)
  Receive Date: 20140211
  Receipt Date: 20140212
  Transmission Date: 20141002
  Serious: Yes (Hospitalization)
  Sender: FDA-Public Use
  Company Number: DE-JNJFOC-20140202343

PATIENT
  Age: 17 Year
  Sex: Male
  Weight: 61.15 kg

DRUGS (2)
  1. REMICADE [Suspect]
     Indication: CROHN^S DISEASE
     Route: 042
     Dates: start: 20110902
  2. 5-AMINOSALICYLIC ACID [Concomitant]
     Route: 048

REACTIONS (1)
  - Anal abscess [Recovered/Resolved]
